FAERS Safety Report 4683771-9 (Version None)
Quarter: 2005Q2

REPORT INFORMATION
  Report Type: 
  Country: None (occurrence: None)
  Receive Date: 20050602
  Receipt Date: 20050405
  Transmission Date: 20051028
  Serious: No
  Sender: FDA-Public Use
  Company Number: USA050494864

PATIENT
  Age: 43 Year
  Sex: Female
  Weight: 118 kg

DRUGS (1)
  1. CYMBALTA [Suspect]
     Indication: DEPRESSION
     Dosage: 60 MG AT BEDTIME
     Dates: start: 20050210

REACTIONS (5)
  - DECREASED APPETITE [None]
  - DYSGEUSIA [None]
  - FOOD CRAVING [None]
  - INSOMNIA [None]
  - YAWNING [None]
